FAERS Safety Report 18995272 (Version 1)
Quarter: 2021Q1

REPORT INFORMATION
  Report Type: Spontaneous
  Country: QA (occurrence: QA)
  Receive Date: 20210311
  Receipt Date: 20210311
  Transmission Date: 20210420
  Serious: Yes (Hospitalization)
  Sender: FDA-Public Use
  Company Number: QA-LUPIN PHARMACEUTICALS INC.-2021-03025

PATIENT
  Age: 38 Year
  Sex: Female
  Weight: 60 kg

DRUGS (16)
  1. ETHAMBUTOL [Concomitant]
     Active Substance: ETHAMBUTOL HYDROCHLORIDE
     Indication: TUBERCULOSIS
     Dosage: 1100 MILLIGRAM, QD
     Route: 065
     Dates: start: 20200129
  2. ENOXAPARIN [Concomitant]
     Active Substance: ENOXAPARIN
     Indication: ANTICOAGULANT THERAPY
     Dosage: 60 MILLIGRAM, BID
     Route: 065
     Dates: start: 20200131, end: 202002
  3. ENOXAPARIN [Concomitant]
     Active Substance: ENOXAPARIN
     Dosage: UNK
     Route: 065
     Dates: start: 202002, end: 202003
  4. RIFAMPIN. [Suspect]
     Active Substance: RIFAMPIN
     Indication: TUBERCULOSIS
     Dosage: 600 MILLIGRAM, QD
     Route: 065
     Dates: start: 20200129, end: 202003
  5. WARFARIN [Interacting]
     Active Substance: WARFARIN
     Dosage: GRADUALLY INCREASED UP TO 10MG
     Route: 048
     Dates: start: 202003
  6. HEPARIN [Concomitant]
     Active Substance: HEPARIN SODIUM
     Indication: ANTICOAGULANT THERAPY
     Dosage: INFUSION
     Route: 042
     Dates: start: 202001, end: 202001
  7. HEPARIN [Concomitant]
     Active Substance: HEPARIN SODIUM
     Dosage: UNK
     Route: 065
     Dates: start: 20200123, end: 20200131
  8. METFORMIN [Concomitant]
     Active Substance: METFORMIN HYDROCHLORIDE
     Indication: DIABETES MELLITUS
     Dosage: 500 MILLIGRAM, BID DOSE AT DISCHARGED
     Route: 065
  9. METOPROLOL. [Concomitant]
     Active Substance: METOPROLOL
     Indication: PRODUCT USED FOR UNKNOWN INDICATION
     Dosage: 50 MILLIGRAM, BID
     Route: 065
  10. RIFAMPICIN/ISONIAZID [Interacting]
     Active Substance: ISONIAZID\RIFAMPIN
     Indication: TUBERCULOSIS
     Dosage: RIFAMPICIN 600MG/ISONIAZID 300 MG
     Route: 065
     Dates: start: 20200324, end: 20200714
  11. WARFARIN [Interacting]
     Active Substance: WARFARIN
     Dosage: 3 MILLIGRAM, QD
     Route: 048
     Dates: start: 202002, end: 202002
  12. ISONIAZID. [Concomitant]
     Active Substance: ISONIAZID
     Indication: TUBERCULOSIS
     Dosage: 300 MILLIGRAM, QD
     Route: 065
     Dates: start: 20200129, end: 202003
  13. WARFARIN [Interacting]
     Active Substance: WARFARIN
     Indication: CEREBRAL VENOUS SINUS THROMBOSIS
     Dosage: 5 MILLIGRAM, QD
     Route: 048
     Dates: start: 20200131, end: 202002
  14. WARFARIN [Interacting]
     Active Substance: WARFARIN
     Dosage: 4 MILLIGRAM, QD
     Route: 048
     Dates: start: 202002, end: 202003
  15. METFORMIN [Concomitant]
     Active Substance: METFORMIN HYDROCHLORIDE
     Dosage: AT PRESENTATION
     Route: 065
  16. PYRAZINAMIDE. [Concomitant]
     Active Substance: PYRAZINAMIDE
     Indication: TUBERCULOSIS
     Dosage: 1600 MILLIGRAM, QD
     Route: 065
     Dates: start: 20200129

REACTIONS (2)
  - Anticoagulation drug level below therapeutic [Unknown]
  - Drug interaction [Unknown]
